FAERS Safety Report 15169316 (Version 1)
Quarter: 2018Q3

REPORT INFORMATION
  Report Type: Spontaneous
  Country: CZ (occurrence: CZ)
  Receive Date: 20180720
  Receipt Date: 20180720
  Transmission Date: 20181010
  Serious: Yes (Life-Threatening, Hospitalization, Other)
  Sender: FDA-Public Use
  Company Number: CZ-TEVA-2017-CZ-839075

PATIENT
  Age: 51 Year
  Sex: Female

DRUGS (17)
  1. TRAZODONE [Interacting]
     Active Substance: TRAZODONE HYDROCHLORIDE
     Indication: PSYCHIATRIC SYMPTOM
     Route: 048
  2. LEVOFLOXACIN. [Suspect]
     Active Substance: LEVOFLOXACIN
     Route: 065
  3. CHLORPROTHIXEN [Suspect]
     Active Substance: CHLORPROTHIXENE HYDROCHLORIDE
     Route: 065
  4. MELOXICAM. [Suspect]
     Active Substance: MELOXICAM
     Indication: PAIN
     Route: 048
  5. MIDAZOLAM [Suspect]
     Active Substance: MIDAZOLAM HYDROCHLORIDE
     Route: 065
  6. METOCLOPRAMIDE. [Suspect]
     Active Substance: METOCLOPRAMIDE
     Route: 065
  7. ACETAMINOPHEN. [Suspect]
     Active Substance: ACETAMINOPHEN
     Route: 065
  8. CHLORPROTHIXEN [Concomitant]
     Active Substance: CHLORPROTHIXENE HYDROCHLORIDE
     Indication: PSYCHIATRIC SYMPTOM
     Route: 048
  9. INDOMETACIN [Suspect]
     Active Substance: INDOMETHACIN
     Indication: PAIN
     Route: 048
  10. PAROXETINE. [Interacting]
     Active Substance: PAROXETINE
     Indication: PSYCHIATRIC SYMPTOM
     Dosage: 60 MILLIGRAM DAILY;
     Route: 048
  11. HYDROXYZINE [Suspect]
     Active Substance: HYDROXYZINE HYDROCHLORIDE
     Route: 065
  12. SUFENTANIL [Suspect]
     Active Substance: SUFENTANIL
     Route: 065
  13. IVABRADINE [Concomitant]
     Active Substance: IVABRADINE
     Indication: SINUS TACHYCARDIA
     Dosage: 10 MILLIGRAM DAILY;
     Route: 048
  14. BROMAZEPAM [Concomitant]
     Active Substance: BROMAZEPAM
     Indication: PSYCHIATRIC SYMPTOM
     Dosage: 2 MILLIGRAM DAILY;
     Route: 048
  15. CODEINE [Interacting]
     Active Substance: CODEINE
     Indication: PAIN
     Route: 048
  16. BUDESONIDE /FORMOTEROL [Concomitant]
     Indication: ASTHMA
     Route: 055
  17. TRAMADOL. [Suspect]
     Active Substance: TRAMADOL
     Indication: PAIN
     Route: 048

REACTIONS (3)
  - Serotonin syndrome [Not Recovered/Not Resolved]
  - Depressed level of consciousness [Unknown]
  - Drug interaction [Unknown]
